FAERS Safety Report 4943990-0 (Version None)
Quarter: 2006Q1

REPORT INFORMATION
  Report Type: 
  Country: None (occurrence: None)
  Receive Date: 20060313
  Receipt Date: 20060313
  Transmission Date: 20060701
  Serious: Yes (Other)
  Sender: FDA-Public Use
  Company Number: None

PATIENT
  Sex: Female
  Weight: 97 kg

DRUGS (4)
  1. CISPLATIN [Suspect]
     Indication: CERVIX CARCINOMA
     Dosage: 99.5 MG
     Dates: start: 20051122, end: 20060309
  2. CISPLATIN [Suspect]
     Indication: SQUAMOUS CELL CARCINOMA
     Dosage: 99.5 MG
     Dates: start: 20051122, end: 20060309
  3. NAVELBINE [Suspect]
     Dosage: 79.6 MG
     Dates: start: 20051122, end: 20060309
  4. MILK OF MAGNESIA TAB [Concomitant]

REACTIONS (6)
  - BODY TEMPERATURE INCREASED [None]
  - FATIGUE [None]
  - HAEMOGLOBIN DECREASED [None]
  - NAUSEA [None]
  - NEUTROPHIL COUNT DECREASED [None]
  - WHITE BLOOD CELL COUNT DECREASED [None]
